FAERS Safety Report 8383461-5 (Version None)
Quarter: 2012Q2

REPORT INFORMATION
  Report Type: 
  Country: None (occurrence: None)
  Receive Date: 20120524
  Receipt Date: 20120522
  Transmission Date: 20120825
  Serious: Yes (Hospitalization)
  Sender: FDA-Public Use
  Company Number: PHHY2012AR026247

PATIENT
  Sex: Female

DRUGS (2)
  1. TRILEPTAL [Suspect]
     Indication: CONVULSION
     Dosage: 300 MG TWICE DAILY
  2. TRILEPTAL [Suspect]
     Indication: EPILEPSY

REACTIONS (3)
  - MATERNAL EXPOSURE DURING PREGNANCY [None]
  - CONVULSION [None]
  - UTERINE CONTRACTIONS DURING PREGNANCY [None]
